FAERS Safety Report 24678620 (Version 2)
Quarter: 2024Q4

REPORT INFORMATION
  Report Type: Spontaneous
  Country: CA (occurrence: CA)
  Receive Date: 20241129
  Receipt Date: 20241220
  Transmission Date: 20250115
  Serious: Yes (Other)
  Sender: CELLTRION
  Company Number: CA-PFIZER INC-202400242081

PATIENT

DRUGS (14)
  1. INFLECTRA [Suspect]
     Active Substance: INFLIXIMAB-DYYB
     Indication: Crohn^s disease
     Dosage: 5 MG/KG, EVERY 8 WEEKS (W 0, 2, 6 THEN EVERY 8 WEEKS)
     Route: 042
     Dates: start: 20240807
  2. INFLECTRA [Suspect]
     Active Substance: INFLIXIMAB-DYYB
     Dosage: 800 MG, AFTER 2 WEEKS (INDUCTION WEEK 2)
     Route: 042
     Dates: start: 20240822
  3. INFLECTRA [Suspect]
     Active Substance: INFLIXIMAB-DYYB
     Dosage: 400 MG, 8 WEEKS AND 5 DAYS ( EVERY 8 WEEK,  0, 2, 6 THEN EVERY 8 WEEKS)
     Route: 042
     Dates: start: 20241022
  4. INFLECTRA [Suspect]
     Active Substance: INFLIXIMAB-DYYB
     Dosage: 400 MG, 8 WEEKS AND 5 DAYS ( EVERY 8 WEEK,  0, 2, 6 THEN EVERY 8 WEEKS)
     Route: 042
     Dates: start: 20241022
  5. INFLECTRA [Suspect]
     Active Substance: INFLIXIMAB-DYYB
     Dosage: 400 MG, 8 WEEKS AND 5 DAYS (EVERY 8 WEEK,  0, 2, 6 THEN EVERY 8 WEEKS)
     Route: 042
     Dates: start: 20241022
  6. INFLECTRA [Suspect]
     Active Substance: INFLIXIMAB-DYYB
     Dosage: 400 MG, AFTER 7 WEEKS AND 1 DAY (5 MG/KG, EVERY 4 WEEK)
     Route: 042
     Dates: start: 20241211
  7. AMLODIPINE [Concomitant]
     Active Substance: AMLODIPINE BESYLATE
     Dosage: 5 MG
  8. CALCIUM [Concomitant]
     Active Substance: CALCIUM
     Dosage: UNK
  9. LEVETIRACETAM [Concomitant]
     Active Substance: LEVETIRACETAM
     Dosage: 500 MG
  10. PROBACLAC [Concomitant]
     Dosage: UNK
  11. PERINDOPRIL [Concomitant]
     Active Substance: PERINDOPRIL
     Dosage: 4 MG
  12. PREDNISONE [Concomitant]
     Active Substance: PREDNISONE
     Dosage: 5 MG
  13. PREDNISONE [Concomitant]
     Active Substance: PREDNISONE
     Dosage: UNK
     Dates: start: 2024
  14. VIT D [VITAMIN D NOS] [Concomitant]
     Dosage: UNK

REACTIONS (6)
  - Pneumonia [Unknown]
  - Colitis [Unknown]
  - Nasopharyngitis [Recovered/Resolved]
  - Fistula [Unknown]
  - Off label use [Unknown]
  - Off label use [Unknown]

NARRATIVE: CASE EVENT DATE: 20240101
